FAERS Safety Report 5648287-1 (Version None)
Quarter: 2008Q1

REPORT INFORMATION
  Report Type: 
  Country: None (occurrence: None)
  Receive Date: 20080229
  Receipt Date: 20080215
  Transmission Date: 20080703
  Serious: Yes (Hospitalization)
  Sender: FDA-Public Use
  Company Number: MPS1-1000029

PATIENT
  Age: 6 Year
  Sex: Male
  Weight: 15 kg

DRUGS (1)
  1. ALDURAZYME [Suspect]
     Indication: MUCOPOLYSACCHARIDOSIS I
     Dosage: 1500 IU, QW, INTRAVENOUS
     Route: 042
     Dates: start: 20070503

REACTIONS (5)
  - BRONCHITIS [None]
  - GASTROINTESTINAL DISORDER [None]
  - INFLUENZA [None]
  - RESPIRATORY DISTRESS [None]
  - TEMPERATURE REGULATION DISORDER [None]
